FAERS Safety Report 14848536 (Version 1)
Quarter: 2018Q2

REPORT INFORMATION
  Report Type: Spontaneous
  Country: None (occurrence: US)
  Receive Date: 20180504
  Receipt Date: 20180504
  Transmission Date: 20180711
  Serious: Yes (Other)
  Sender: FDA-Public Use
  Company Number: US-RARE DISEASE THERAPEUTICS, INC.-2047214

PATIENT
  Age: 4 Year
  Sex: Female
  Weight: 16.78 kg

DRUGS (5)
  1. METHOTREXATE. [Suspect]
     Active Substance: METHOTREXATE
  2. DEXAMETHASONE. [Suspect]
     Active Substance: DEXAMETHASONE
  3. VINCRISTINE SULFATE. [Suspect]
     Active Substance: VINCRISTINE SULFATE
  4. PURIXAN [Suspect]
     Active Substance: MERCAPTOPURINE
     Route: 065
     Dates: start: 20180423
  5. PURIXAN [Suspect]
     Active Substance: MERCAPTOPURINE
     Route: 065
     Dates: start: 20170621, end: 20180416

REACTIONS (1)
  - Ear infection [Recovered/Resolved]

NARRATIVE: CASE EVENT DATE: 20180416
